FAERS Safety Report 7725535-5 (Version None)
Quarter: 2011Q3

REPORT INFORMATION
  Report Type: 
  Country: None (occurrence: None)
  Receive Date: 20110902
  Receipt Date: 20110826
  Transmission Date: 20111222
  Serious: Yes (Death)
  Sender: FDA-Public Use
  Company Number: JP-GENZYME-FLUD-1001359

PATIENT
  Sex: Female

DRUGS (14)
  1. TACROLIMUS [Concomitant]
     Dosage: 0.02 MG/KG, QD; CONTINUOUS INFUSION; TARGET BLOOD LEVEL 8-10 NG/ML UNTIL DAY 30; TAPERED UNTIL ABSEN
     Route: 041
  2. IMMUNE GLOBULIN NOS [Concomitant]
     Indication: ANTIVIRAL PROPHYLAXIS
     Dosage: 100 MG/KG, QD EVERY 2 WEEKS UNTIL DAY 100
     Route: 042
  3. ATG FRESENIUS [Suspect]
     Indication: HISTIOCYTOSIS HAEMATOPHAGIC
  4. METHYLPREDNISOLONE [Concomitant]
     Indication: PROPHYLAXIS AGAINST GRAFT VERSUS HOST DISEASE
     Dosage: 1 MG/KG, QD; TAPERING 3RD WEEK UNTIL DAY 30 USING SERUM INTERLEUKIN-2 RECEPTOR LEVEL
     Route: 042
  5. FLUDARA [Suspect]
     Indication: BONE MARROW CONDITIONING REGIMEN
     Dosage: 30 MG/M2, QD ON DAYS -6 TO -4
     Route: 042
  6. AMPHOTERICIN B [Concomitant]
     Indication: ANTIBIOTIC PROPHYLAXIS
     Dosage: UNK
     Route: 048
  7. ATG FRESENIUS [Suspect]
     Indication: BONE MARROW CONDITIONING REGIMEN
     Dosage: 2 MG/KG, QD ON DAYS -4 TO -1
     Route: 065
  8. COTRIM [Concomitant]
     Indication: ANTIFUNGAL PROPHYLAXIS
     Dosage: FOR AT LEAST A YEAR
     Route: 065
  9. ACYCLOVIR [Concomitant]
     Indication: ANTIVIRAL PROPHYLAXIS
     Dosage: 1000 MG, QD FOR 5 WEEKS AFTER TRANSPLANTATION
     Route: 065
  10. GANCICLOVIR [Concomitant]
     Indication: ANTIVIRAL PROPHYLAXIS
     Dosage: 2.5 MG, TID FROM DAY -10 TO DAY -3
     Route: 065
  11. FLUDARA [Suspect]
     Indication: HISTIOCYTOSIS HAEMATOPHAGIC
  12. TACROLIMUS [Concomitant]
     Indication: PROPHYLAXIS AGAINST GRAFT VERSUS HOST DISEASE
     Dosage: BEFORE TRANSPLANTATION
     Route: 065
  13. VANCOMYCIN [Concomitant]
     Indication: ANTIBIOTIC PROPHYLAXIS
     Dosage: UNK
     Route: 048
  14. CIPROFLOXACIN [Concomitant]
     Indication: ANTIBIOTIC PROPHYLAXIS
     Dosage: UNK
     Route: 048

REACTIONS (1)
  - VENOOCCLUSIVE LIVER DISEASE [None]
